FAERS Safety Report 8893692 (Version 1)
Quarter: 2012Q4

REPORT INFORMATION
  Report Type: 
  Country: US (occurrence: US)
  Receive Date: 20121108
  Receipt Date: 20121108
  Transmission Date: 20130627
  Serious: Yes (Other)
  Sender: FDA-Public Use
  Company Number: US-JNJFOC-20121015512

PATIENT
  Sex: Male

DRUGS (3)
  1. INVEGA [Suspect]
     Indication: POST CONCUSSION SYNDROME
     Route: 048
     Dates: start: 201210, end: 20121019
  2. INVEGA [Suspect]
     Indication: POST CONCUSSION SYNDROME
     Route: 048
     Dates: start: 201210, end: 201210
  3. DEPAKOTE [Suspect]
     Indication: PRODUCT USED FOR UNKNOWN INDICATION
     Route: 048
     Dates: start: 2012, end: 20121019

REACTIONS (12)
  - Suicidal ideation [Not Recovered/Not Resolved]
  - Chest pain [Unknown]
  - Agitation [Unknown]
  - Emotional disorder [Unknown]
  - Muscle disorder [Unknown]
  - Confusional state [Unknown]
  - Malaise [Unknown]
  - Hypokinesia [Unknown]
  - Abdominal pain [Unknown]
  - Tremor [Unknown]
  - Treatment noncompliance [Unknown]
  - Akathisia [Unknown]
